FAERS Safety Report 4775312-2 (Version None)
Quarter: 2005Q3

REPORT INFORMATION
  Report Type: 
  Country: None (occurrence: None)
  Receive Date: 20050914
  Receipt Date: 20050721
  Transmission Date: 20060218
  Serious: Yes (Hospitalization)
  Sender: FDA-Public Use
  Company Number: S05-USA-03614-01

PATIENT
  Sex: Female

DRUGS (2)
  1. LEXAPRO [Suspect]
  2. ANTIHYPERTENSIVE (NOS) [Suspect]
     Indication: HYPERTENSION

REACTIONS (1)
  - PANCREATITIS [None]
